FAERS Safety Report 5115407-7 (Version None)
Quarter: 2006Q3

REPORT INFORMATION
  Report Type: 
  Country: None (occurrence: None)
  Receive Date: 20060922
  Receipt Date: 19931129
  Transmission Date: 20061208
  Serious: Yes (Other)
  Sender: FDA-Public Use
  Company Number: 2006110316

PATIENT
  Age: 62 Year
  Sex: Female

DRUGS (7)
  1. IRINOTECAN HCL [Suspect]
     Indication: COLON CANCER
     Dosage: 507 MG (1 IN 3 WK), INTRAVENOUS
     Route: 042
     Dates: start: 19930715, end: 19930715
  2. IRINOTECAN HCL [Suspect]
     Indication: COLON CANCER
     Dosage: 507 MG (1 IN 3 WK), INTRAVENOUS
     Route: 042
     Dates: start: 19930826, end: 19930826
  3. IRINOTECAN HCL [Suspect]
     Indication: COLON CANCER
     Dosage: 507 MG (1 IN 3 WK), INTRAVENOUS
     Route: 042
     Dates: start: 19931117, end: 19931117
  4. ATROPINE [Concomitant]
  5. ENOXAPARIN SODIUM [Concomitant]
  6. LOPERAMIDE HCL [Concomitant]
  7. ZOPICLONE (ZOPICLONE) [Concomitant]

REACTIONS (1)
  - NO ADVERSE DRUG EFFECT [None]
